FAERS Safety Report 6039218-3 (Version None)
Quarter: 2009Q1

REPORT INFORMATION
  Report Type: 
  Country: None (occurrence: None)
  Receive Date: 20090115
  Receipt Date: 20090115
  Transmission Date: 20090719
  Serious: Yes (Death, Other)
  Sender: FDA-Public Use
  Company Number: GB-WYE-H06547608

PATIENT
  Sex: Male
  Weight: 77.2 kg

DRUGS (3)
  1. TACROLIMUS [Suspect]
     Indication: PROPHYLAXIS AGAINST TRANSPLANT REJECTION
     Route: 048
     Dates: start: 20080511, end: 20080101
  2. TACROLIMUS [Suspect]
     Route: 048
     Dates: start: 20080101, end: 20081208
  3. AZATHIOPRINE [Concomitant]
     Indication: PROPHYLAXIS AGAINST TRANSPLANT REJECTION
     Dates: start: 20080511

REACTIONS (1)
  - HEPATIC NEOPLASM MALIGNANT RECURRENT [None]
